FAERS Safety Report 5153398-3 (Version None)
Quarter: 2006Q4

REPORT INFORMATION
  Report Type: 
  Country: None (occurrence: None)
  Receive Date: 20061114
  Receipt Date: 20061108
  Transmission Date: 20070319
  Serious: Yes (Hospitalization)
  Sender: FDA-Public Use
  Company Number: TCI2006A04997

PATIENT
  Age: 76 Year
  Sex: Male

DRUGS (4)
  1. LEUPROLIDE ACETATE [Suspect]
     Indication: PROSTATE CANCER STAGE II
     Dosage: 11.25 MG (11;25 MG, 1 IN 12 WK); SUBCUTANEOUS
     Route: 058
     Dates: start: 20060404, end: 20060404
  2. BLOPRESS (CANDESARTAN CILEXETIL) (TABLETS) [Concomitant]
  3. ARYTHMET (ALLOPURINOL) (TABLETS) [Concomitant]
  4. PHENLASE-S (PHENLASE-S) (CAPSULES) [Concomitant]

REACTIONS (1)
  - PANCYTOPENIA [None]
